FAERS Safety Report 7201605-5 (Version None)
Quarter: 2010Q4

REPORT INFORMATION
  Report Type: 
  Country: None (occurrence: None)
  Receive Date: 20101229
  Receipt Date: 20101221
  Transmission Date: 20110411
  Serious: Yes (Other)
  Sender: FDA-Public Use
  Company Number: US-AMGEN-USASP2010007241

PATIENT

DRUGS (2)
  1. ENBREL [Suspect]
     Indication: JUVENILE ARTHRITIS
     Dosage: 25 MG, 2 TIMES/WK
     Dates: start: 20101123
  2. METHOTREXATE [Concomitant]
     Dosage: 1 MG, QWK
     Dates: start: 20080101

REACTIONS (7)
  - HEADACHE [None]
  - INJECTION SITE ERYTHEMA [None]
  - INJECTION SITE PAIN [None]
  - INJECTION SITE REACTION [None]
  - INJECTION SITE SWELLING [None]
  - INJECTION SITE WARMTH [None]
  - NAUSEA [None]
